FAERS Safety Report 17279218 (Version 2)
Quarter: 2020Q1

REPORT INFORMATION
  Report Type: Report from Study
  Country: TW (occurrence: TW)
  Receive Date: 20200116
  Receipt Date: 20200124
  Transmission Date: 20200409
  Serious: Yes (Other)
  Sender: FDA-Public Use
  Company Number: TW-BAYER-2020-006078

PATIENT
  Sex: Female

DRUGS (1)
  1. MIRENA [Suspect]
     Active Substance: LEVONORGESTREL
     Dosage: 20 MCG/24HR, CONT
     Route: 015
     Dates: start: 20200103, end: 20200113

REACTIONS (3)
  - Menorrhagia [Recovering/Resolving]
  - Device expulsion [Recovered/Resolved]
  - Anaemia [None]

NARRATIVE: CASE EVENT DATE: 202001
